FAERS Safety Report 8601580-2 (Version None)
Quarter: 2012Q3

REPORT INFORMATION
  Report Type: 
  Country: None (occurrence: None)
  Receive Date: 20120817
  Receipt Date: 20120207
  Transmission Date: 20120928
  Serious: No
  Sender: FDA-Public Use
  Company Number: US-BRISTOL-MYERS SQUIBB COMPANY-16275745

PATIENT
  Age: 47 Year
  Sex: Female

DRUGS (8)
  1. LECITHIN [Concomitant]
  2. SPRYCEL [Suspect]
     Indication: CHRONIC MYELOID LEUKAEMIA
     Route: 048
     Dates: start: 20110824
  3. IRON [Concomitant]
  4. XOPENEX [Concomitant]
  5. AMBIEN [Concomitant]
  6. CENTRUM [Concomitant]
  7. FLEXERIL [Concomitant]
  8. CALCIUM [Concomitant]

REACTIONS (10)
  - PAINFUL DEFAECATION [None]
  - RECTAL HAEMORRHAGE [None]
  - ABDOMINAL PAIN [None]
  - HEADACHE [None]
  - PYREXIA [None]
  - CONSTIPATION [None]
  - DIARRHOEA [None]
  - DIZZINESS [None]
  - NAUSEA [None]
  - COUGH [None]
